FAERS Safety Report 5551219-8 (Version None)
Quarter: 2007Q4

REPORT INFORMATION
  Report Type: 
  Country: None (occurrence: None)
  Receive Date: 20071210
  Receipt Date: 20071126
  Transmission Date: 20080405
  Serious: Yes (Hospitalization, Other)
  Sender: FDA-Public Use
  Company Number: 2007JP005247

PATIENT
  Age: 37 Year
  Sex: Female

DRUGS (2)
  1. PROGRAF [Suspect]
     Indication: RHEUMATOID ARTHRITIS
     Dosage: 1.5 MG
  2. PREDNISONE [Concomitant]

REACTIONS (10)
  - ACQUIRED DIAPHRAGMATIC EVENTRATION [None]
  - ANOREXIA [None]
  - BETA HAEMOLYTIC STREPTOCOCCAL INFECTION [None]
  - MALAISE [None]
  - OTORRHOEA [None]
  - PLEURAL EFFUSION [None]
  - PNEUMONIA NECROTISING [None]
  - PNEUMONIA STREPTOCOCCAL [None]
  - PNEUMOTHORAX [None]
  - SPUTUM PURULENT [None]
